FAERS Safety Report 16143688 (Version 1)
Quarter: 2019Q2

REPORT INFORMATION
  Report Type: Spontaneous
  Country: GB (occurrence: GB)
  Receive Date: 20190401
  Receipt Date: 20190401
  Transmission Date: 20190711
  Serious: Yes (Life-Threatening, Other)
  Sender: FDA-Public Use
  Company Number: GB-B.I. PHARMACEUTICALS,INC./RIDGEFIELD-2019-12-001123

PATIENT
  Age: 70 Year
  Sex: Female

DRUGS (5)
  1. DABIGATRAN [Concomitant]
     Active Substance: DABIGATRAN
     Indication: ATRIAL FIBRILLATION
     Route: 065
  2. PRAXBIND [Suspect]
     Active Substance: IDARUCIZUMAB
     Indication: PROCOAGULANT THERAPY
     Dosage: 2.5G IN 50ML BY SLOW BOLUS ;ROUTE: 040
     Route: 065
     Dates: start: 20190313, end: 20190313
  3. ANAESTHETIC [Concomitant]
     Active Substance: UNSPECIFIED INGREDIENT
     Indication: ANAESTHESIA
     Route: 065
     Dates: start: 20190313, end: 20190313
  4. LOSARTAN. [Concomitant]
     Active Substance: LOSARTAN
     Indication: PRODUCT USED FOR UNKNOWN INDICATION
     Route: 065
  5. DILTIAZEM. [Concomitant]
     Active Substance: DILTIAZEM
     Indication: PRODUCT USED FOR UNKNOWN INDICATION
     Route: 065

REACTIONS (2)
  - Hypotension [Recovered/Resolved]
  - Oxygen saturation decreased [Recovered/Resolved]

NARRATIVE: CASE EVENT DATE: 20190313
